FAERS Safety Report 20446661 (Version 1)
Quarter: 2022Q1

REPORT INFORMATION
  Report Type: Spontaneous
  Country: FR (occurrence: FR)
  Receive Date: 20220208
  Receipt Date: 20220208
  Transmission Date: 20220423
  Serious: Yes (Hospitalization)
  Sender: FDA-Public Use
  Company Number: None

PATIENT
  Age: 63 Year
  Sex: Male
  Weight: 61 kg

DRUGS (7)
  1. ERTAPENEM SODIUM [Suspect]
     Active Substance: ERTAPENEM SODIUM
     Indication: Urinary tract infection
     Dates: start: 20211102, end: 20211115
  2. CELLCEPT [Suspect]
     Active Substance: MYCOPHENOLATE MOFETIL
     Indication: Multiple sclerosis
     Dosage: CAPSULE, ONE TOTAL
     Route: 048
     Dates: end: 20211115
  3. TRAMADOL HYDROCHLORIDE [Suspect]
     Active Substance: TRAMADOL HYDROCHLORIDE
     Indication: Pain
     Route: 048
     Dates: end: 20211113
  4. OXAZEPAM [Concomitant]
     Active Substance: OXAZEPAM
     Indication: Anxiety
     Dosage: COMPRESSED, UP TO 6/DAY
     Route: 048
     Dates: start: 20211116, end: 20211119
  5. DAFALGAN [Concomitant]
     Active Substance: ACETAMINOPHEN
     Indication: Pain
     Dosage: 1 TAB 3X/DAY IF PAIN
     Route: 048
  6. TIAPRIDE HYDROCHLORIDE [Concomitant]
     Active Substance: TIAPRIDE HYDROCHLORIDE
     Dosage: 138 MG/ML DRINKABLE SOLUTION, 50MG IN THE MORNING
     Route: 042
     Dates: start: 20211117, end: 20211119
  7. DANTRIUM [Concomitant]
     Active Substance: DANTROLENE SODIUM
     Dosage: CAPSULE
     Route: 048

REACTIONS (2)
  - Hallucinations, mixed [Recovered/Resolved]
  - Confusional state [Recovering/Resolving]

NARRATIVE: CASE EVENT DATE: 20211113
